FAERS Safety Report 6754124-4 (Version None)
Quarter: 2010Q2

REPORT INFORMATION
  Report Type: 
  Country: None (occurrence: None)
  Receive Date: 20100601
  Receipt Date: 20100519
  Transmission Date: 20101027
  Serious: Yes (Other)
  Sender: FDA-Public Use
  Company Number: 1000014095

PATIENT
  Age: 22 Year

DRUGS (2)
  1. CITALOPRAM HYDROBROMIDE [Suspect]
     Dosage: ORAL
     Route: 048
  2. PLACIDA [Concomitant]

REACTIONS (4)
  - ABDOMINAL DISCOMFORT [None]
  - COMPLETED SUICIDE [None]
  - HEAD DISCOMFORT [None]
  - SWOLLEN TONGUE [None]
